FAERS Safety Report 21017242 (Version 3)
Quarter: 2022Q3

REPORT INFORMATION
  Report Type: Spontaneous
  Country: US (occurrence: US)
  Receive Date: 20220628
  Receipt Date: 20220928
  Transmission Date: 20221027
  Serious: Yes (Other)
  Sender: FDA-Public Use
  Company Number: US-JNJFOC-20220644074

PATIENT
  Age: 42 Year
  Sex: Male
  Weight: 83.990 kg

DRUGS (1)
  1. SIMPONI ARIA [Suspect]
     Active Substance: GOLIMUMAB
     Indication: Rheumatoid arthritis
     Dosage: PATIENT HAS HAD 4 INFUSIONS OF SIMPONI ARIA.
     Route: 042

REACTIONS (4)
  - Rheumatoid arthritis [Not Recovered/Not Resolved]
  - Blood triglycerides abnormal [Recovering/Resolving]
  - Low density lipoprotein decreased [Unknown]
  - Pain [Unknown]
